FAERS Safety Report 4602850-5 (Version None)
Quarter: 2005Q1

REPORT INFORMATION
  Report Type: 
  Country: None (occurrence: None)
  Receive Date: 20050307
  Receipt Date: 20050224
  Transmission Date: 20050727
  Serious: Yes (Death, Hospitalization)
  Sender: FDA-Public Use
  Company Number: 200510142BNE

PATIENT
  Sex: Male

DRUGS (1)
  1. CIPROFLOXACIN [Suspect]
     Indication: PSEUDOMONAL SEPSIS
     Dosage: INTRAVENOUS, ORAL

REACTIONS (3)
  - ADVERSE DRUG REACTION [None]
  - RASH [None]
  - VASCULITIS [None]
